FAERS Safety Report 26178316 (Version 1)
Quarter: 2025Q4

REPORT INFORMATION
  Report Type: Spontaneous
  Country: US (occurrence: US)
  Receive Date: 20251219
  Receipt Date: 20251219
  Transmission Date: 20260117
  Serious: Yes (Hospitalization)
  Sender: AMGEN
  Company Number: US-AMGEN-USASP2025248398

PATIENT
  Age: 45 Year
  Sex: Male

DRUGS (2)
  1. ECULIZUMAB [Suspect]
     Active Substance: ECULIZUMAB
     Indication: Atypical haemolytic uraemic syndrome
     Dosage: UNK
     Route: 065
  2. RITUXIMAB [Suspect]
     Active Substance: RITUXIMAB
     Indication: Encephalitis
     Dosage: UNK
     Route: 065

REACTIONS (5)
  - Posterior reversible encephalopathy syndrome [Unknown]
  - Cerebral infarction [Unknown]
  - Peripheral swelling [Unknown]
  - Leukocytosis [Unknown]
  - Off label use [Unknown]
